FAERS Safety Report 5921518-6 (Version None)
Quarter: 2008Q4

REPORT INFORMATION
  Report Type: 
  Country: None (occurrence: None)
  Receive Date: 20081017
  Receipt Date: 20081010
  Transmission Date: 20090506
  Serious: Yes (Disabling)
  Sender: FDA-Public Use
  Company Number: GB-JNJFOC-20081002889

PATIENT
  Age: 32 Year
  Sex: Female

DRUGS (1)
  1. RISPERDAL [Suspect]
     Indication: HALLUCINATION, AUDITORY
     Route: 048

REACTIONS (4)
  - ANKLE FRACTURE [None]
  - CLAVICLE FRACTURE [None]
  - INCONTINENCE [None]
  - LOSS OF CONTROL OF LEGS [None]
